FAERS Safety Report 6800797-7 (Version None)
Quarter: 2010Q2

REPORT INFORMATION
  Report Type: 
  Country: None (occurrence: None)
  Receive Date: 20100629
  Receipt Date: 20070415
  Transmission Date: 20101027
  Serious: Yes (Other)
  Sender: FDA-Public Use
  Company Number: US-PFIZER INC-2007030421

PATIENT
  Sex: Female
  Weight: 92.99 kg

DRUGS (12)
  1. CADUET [Suspect]
     Indication: HYPERTENSION
     Dates: start: 20070413
  2. FOLIC ACID [Concomitant]
  3. PREVACID [Concomitant]
  4. SYNTHROID [Concomitant]
  5. PRAVACHOL [Concomitant]
  6. MOTRIN [Concomitant]
  7. ATIVAN [Concomitant]
  8. KLONOPIN [Concomitant]
  9. LOPERAMIDE [Concomitant]
  10. VITAMIN B-12 [Concomitant]
  11. BENADRYL [Concomitant]
  12. MULTI-VITAMINS [Concomitant]

REACTIONS (1)
  - BLOOD PRESSURE FLUCTUATION [None]
